FAERS Safety Report 6248596-1 (Version None)
Quarter: 2009Q2

REPORT INFORMATION
  Report Type: 
  Country: None (occurrence: None)
  Receive Date: 20090629
  Receipt Date: 20090625
  Transmission Date: 20091009
  Serious: Yes (Other)
  Sender: FDA-Public Use
  Company Number: GB-ASTRAZENECA-2009GB01103

PATIENT
  Age: 36 Year
  Sex: Male

DRUGS (8)
  1. SEROQUEL XR [Suspect]
     Indication: ANXIETY
     Route: 048
     Dates: start: 20090301
  2. SEROQUEL XR [Suspect]
     Indication: ASPERGER'S DISORDER
     Route: 048
     Dates: start: 20090301
  3. CARBAMAZEPINE [Concomitant]
     Dosage: STARTED ? YEARS AGO
     Route: 048
  4. FLUOXETINE HCL [Concomitant]
     Indication: ANXIETY
     Dosage: STARTED ? YEARS AGO
     Route: 048
  5. FLUOXETINE HCL [Concomitant]
     Indication: OBSESSIVE-COMPULSIVE DISORDER
     Dosage: STARTED ? YEARS AGO
     Route: 048
  6. CALMS [Concomitant]
  7. UNSPECIFIED FOR URINARY PROBLEMS [Concomitant]
     Indication: URINARY TRACT DISORDER
  8. AMISULPRIDE [Concomitant]
     Dosage: DOWNTRITRATED OFF AMISULPRIDE FOLLOWING PRESCRIPTION OF QUETIAPINE

REACTIONS (1)
  - PSYCHOSEXUAL DISORDER [None]
